FAERS Safety Report 16757593 (Version 1)
Quarter: 2019Q3

REPORT INFORMATION
  Report Type: Spontaneous
  Country: CA (occurrence: CA)
  Receive Date: 20190830
  Receipt Date: 20190830
  Transmission Date: 20191005
  Serious: Yes (Hospitalization)
  Sender: FDA-Public Use
  Company Number: CA-TEVA-2019-CA-1099296

PATIENT
  Age: 2 Year
  Sex: Female
  Weight: 13 kg

DRUGS (7)
  1. MITOXANTRONE [Suspect]
     Active Substance: MITOXANTRONE HYDROCHLORIDE
     Indication: ACUTE MYELOID LEUKAEMIA
     Route: 042
  2. AMOXICILLIN/CLAVULANIC ACID [Concomitant]
     Active Substance: AMOXICILLIN\CLAVULANIC ACID
  3. ETOPOSIDE. [Suspect]
     Active Substance: ETOPOSIDE
     Indication: ACUTE MYELOID LEUKAEMIA
     Route: 042
  4. CYTARABINE INJECTION [Suspect]
     Active Substance: CYTARABINE
     Dosage: 1200 MILLIGRAM DAILY;
     Route: 042
  5. TOBRAMYCIN INJECTION USP [Concomitant]
     Active Substance: TOBRAMYCIN
  6. CYTARABINE INJECTION [Suspect]
     Active Substance: CYTARABINE
     Indication: ACUTE MYELOID LEUKAEMIA
     Route: 037
  7. CYTARABINE INJECTION [Suspect]
     Active Substance: CYTARABINE
     Dosage: 3600 MILLIGRAM DAILY;
     Route: 042

REACTIONS (3)
  - Bone marrow infiltration [Unknown]
  - Bone marrow failure [Unknown]
  - Streptococcal bacteraemia [Unknown]
